FAERS Safety Report 5822590-4 (Version None)
Quarter: 2008Q3

REPORT INFORMATION
  Report Type: 
  Country: None (occurrence: None)
  Receive Date: 20080725
  Receipt Date: 20080721
  Transmission Date: 20090109
  Serious: Yes (Hospitalization)
  Sender: FDA-Public Use
  Company Number: ES-BRISTOL-MYERS SQUIBB COMPANY-14270342

PATIENT
  Age: 40 Year
  Sex: Male

DRUGS (8)
  1. REYATAZ [Suspect]
     Indication: HIV INFECTION
     Dosage: 300 MG 30 TABLETS
     Route: 048
     Dates: start: 20071113
  2. DOXORUBICIN HCL [Suspect]
     Indication: HODGKIN'S DISEASE
     Route: 042
     Dates: start: 20080409, end: 20080409
  3. DACARBAZINE [Suspect]
     Indication: HODGKIN'S DISEASE
     Route: 042
     Dates: start: 20080409, end: 20080409
  4. VINBLASTINE SULFATE [Suspect]
     Indication: HODGKIN'S DISEASE
     Dosage: ON 02-MAY-2008 RECEIVED  OTHER CYCLE WITH VINBLASTINE.SECOND CYCLE FROM 28-MAY-2008 TO 11-JUN-2008.
     Route: 042
     Dates: start: 20080409, end: 20080409
  5. BLEOMYCIN SULFATE [Suspect]
     Indication: HODGKIN'S DISEASE
     Dosage: BLEOMICINE MERCK 15UI IV 100 VIAL + 100 AMPULES
     Route: 042
     Dates: start: 20080409, end: 20080409
  6. EPIVIR [Suspect]
     Indication: HIV INFECTION
     Dosage: 300 MG COATED TABLETS
     Route: 048
     Dates: start: 20080408
  7. NORVIR [Suspect]
     Indication: HIV INFECTION
     Dosage: 100 MG 84 CAPSULES
     Route: 048
     Dates: start: 20071113
  8. VIREAD [Suspect]
     Indication: HIV INFECTION
     Dosage: VIREAD 245 MG 30 COATED TABLETS
     Route: 048
     Dates: start: 20080408

REACTIONS (1)
  - ILEUS PARALYTIC [None]
